FAERS Safety Report 26158948 (Version 1)
Quarter: 2025Q4

REPORT INFORMATION
  Report Type: Spontaneous
  Country: US (occurrence: US)
  Receive Date: 20251215
  Receipt Date: 20251215
  Transmission Date: 20260117
  Serious: No
  Sender: JOHNSON AND JOHNSON
  Company Number: US-JNJFOC-20251218864

PATIENT
  Sex: Female

DRUGS (7)
  1. SPRAVATO [Suspect]
     Active Substance: ESKETAMINE
     Indication: Depression
     Dosage: ?84 MG, 152 TOTAL DOSES?
     Route: 045
     Dates: start: 20210504, end: 20230711
  2. SPRAVATO [Suspect]
     Active Substance: ESKETAMINE
     Dosage: ? MG, 1 TOTAL DOSES?
     Route: 045
     Dates: start: 20230713, end: 20230713
  3. SPRAVATO [Suspect]
     Active Substance: ESKETAMINE
     Dosage: ? 84 MG, 6 TOTAL DOSES?
     Route: 045
     Dates: start: 20230718, end: 20230807
  4. SPRAVATO [Suspect]
     Active Substance: ESKETAMINE
     Dosage: ? MG, 1 TOTAL DOSES?
     Route: 045
     Dates: start: 20230810, end: 20230810
  5. SPRAVATO [Suspect]
     Active Substance: ESKETAMINE
     Dosage: ? 84 MG, 48 TOTAL DOSES?
     Route: 045
     Dates: start: 20230814, end: 20240617
  6. SPRAVATO [Suspect]
     Active Substance: ESKETAMINE
     Dosage: ?56 MG, 8 TOTAL DOSES?
     Route: 045
     Dates: start: 20210316, end: 20210429
  7. KETAMINE [Concomitant]
     Active Substance: KETAMINE
     Indication: Product used for unknown indication
     Route: 042

REACTIONS (1)
  - Pain [Recovered/Resolved]
